FAERS Safety Report 6059060-7 (Version None)
Quarter: 2009Q1

REPORT INFORMATION
  Report Type: 
  Country: None (occurrence: None)
  Receive Date: 20090130
  Receipt Date: 20090119
  Transmission Date: 20090719
  Serious: Yes (Hospitalization)
  Sender: FDA-Public Use
  Company Number: B0555121A

PATIENT
  Age: 68 Year
  Sex: Male

DRUGS (5)
  1. AUGMENTIN '125' [Suspect]
     Route: 048
     Dates: start: 20080815, end: 20080905
  2. KENZEN [Suspect]
     Indication: HYPERTENSION
     Dosage: 1UNIT PER DAY
     Route: 065
  3. SPIRAMYCIN METRONIDAZOLE [Suspect]
     Indication: PROPHYLAXIS
     Dosage: 1UNIT THREE TIMES PER DAY
     Route: 048
     Dates: start: 20070101, end: 20070701
  4. PLAVIX [Suspect]
     Indication: PLATELET DISORDER
     Dosage: 1UNIT PER DAY
     Route: 048
     Dates: start: 20040101
  5. TAHOR [Suspect]
     Dosage: 1UNIT PER DAY
     Route: 048
     Dates: start: 20040101

REACTIONS (3)
  - ACUTE MYELOID LEUKAEMIA [None]
  - MYELODYSPLASTIC SYNDROME [None]
  - PANCYTOPENIA [None]
